FAERS Safety Report 9531886 (Version 1)
Quarter: 2013Q3

REPORT INFORMATION
  Report Type: Spontaneous
  Country: US (occurrence: US)
  Receive Date: 20130918
  Receipt Date: 20130918
  Transmission Date: 20140515
  Serious: No
  Sender: FDA-Public Use
  Company Number: US-PFIZER INC-2013268063

PATIENT
  Sex: Female

DRUGS (2)
  1. DILANTIN-125 [Suspect]
     Dosage: UNK
  2. KEPPRA [Suspect]
     Dosage: UNK

REACTIONS (2)
  - Rash [Unknown]
  - Pigmentation disorder [Unknown]
